FAERS Safety Report 14755868 (Version 8)
Quarter: 2018Q2

REPORT INFORMATION
  Report Type: Spontaneous
  Country: US (occurrence: US)
  Receive Date: 20180413
  Receipt Date: 20180522
  Transmission Date: 20180711
  Serious: No
  Sender: FDA-Public Use
  Company Number: US-PFIZER INC-2018150681

PATIENT
  Age: 71 Year
  Sex: Female

DRUGS (2)
  1. IBRANCE [Suspect]
     Active Substance: PALBOCICLIB
     Indication: NEOPLASM MALIGNANT
     Dosage: 125 MG, UNK
  2. IBRANCE [Suspect]
     Active Substance: PALBOCICLIB
     Indication: BREAST CANCER METASTATIC
     Dosage: 100 MG, CYCLIC

REACTIONS (10)
  - Abdominal pain upper [Unknown]
  - Pelvic pain [Unknown]
  - Back pain [Unknown]
  - Tooth disorder [Unknown]
  - Muscle spasms [Unknown]
  - Pain [Unknown]
  - Breast pain [Unknown]
  - Mouth swelling [Unknown]
  - Malaise [Unknown]
  - Swelling face [Unknown]
